FAERS Safety Report 11778286 (Version 1)
Quarter: 2015Q4

REPORT INFORMATION
  Report Type: Spontaneous
  Country: US (occurrence: US)
  Receive Date: 20151125
  Receipt Date: 20151125
  Transmission Date: 20160304
  Serious: Yes (Other)
  Sender: FDA-Public Use
  Company Number: US-GLAXOSMITHKLINE-US2015167332

PATIENT
  Age: 82 Year
  Sex: Female

DRUGS (4)
  1. PREDNISONE. [Concomitant]
     Active Substance: PREDNISONE
  2. SIMVASTATIN. [Concomitant]
     Active Substance: SIMVASTATIN
  3. FOSINOPRIL [Concomitant]
     Active Substance: FOSINOPRIL
  4. FLOVENT HFA [Suspect]
     Active Substance: FLUTICASONE PROPIONATE
     Indication: BRONCHIECTASIS
     Dosage: 220 MCG, 2 PUFF(S), BID
     Route: 055

REACTIONS (8)
  - Haemoptysis [Recovered/Resolved]
  - Productive cough [Unknown]
  - Cough [Not Recovered/Not Resolved]
  - Bronchitis [Recovered/Resolved]
  - Sputum discoloured [Unknown]
  - Pulmonary pain [Not Recovered/Not Resolved]
  - Lung infection [Not Recovered/Not Resolved]
  - Pneumonia [Recovered/Resolved]

NARRATIVE: CASE EVENT DATE: 20151113
